FAERS Safety Report 12262063 (Version 12)
Quarter: 2016Q4

REPORT INFORMATION
  Report Type: Report from Study
  Country: CA (occurrence: CA)
  Receive Date: 20160413
  Receipt Date: 20161215
  Transmission Date: 20170207
  Serious: Yes (Other)
  Sender: FDA-Public Use
  Company Number: CA-ROCHE-1709474

PATIENT
  Age: 59 Year
  Sex: Female

DRUGS (8)
  1. BISOPROLOL [Concomitant]
     Active Substance: BISOPROLOL
  2. METHOTREXATE. [Concomitant]
     Active Substance: METHOTREXATE
  3. ACETYLSALICYLIC ACID [Concomitant]
     Active Substance: ASPIRIN
  4. COVERSYL [Concomitant]
     Active Substance: PERINDOPRIL
     Indication: HYPERTENSION
  5. ACTEMRA [Suspect]
     Active Substance: TOCILIZUMAB
     Indication: RHEUMATOID ARTHRITIS
     Route: 042
     Dates: start: 20160209
  6. AZITHROMYCIN ANHYDROUS. [Concomitant]
     Active Substance: AZITHROMYCIN ANHYDROUS
     Route: 048
  7. FOLIC ACID. [Concomitant]
     Active Substance: FOLIC ACID
  8. CELEBREX [Concomitant]
     Active Substance: CELECOXIB

REACTIONS (9)
  - Tympanic membrane perforation [Recovered/Resolved]
  - Blood pressure increased [Unknown]
  - Joint swelling [Unknown]
  - Joint stiffness [Not Recovered/Not Resolved]
  - Heart rate decreased [Unknown]
  - Middle ear effusion [Unknown]
  - Heart rate decreased [Unknown]
  - Blood pressure increased [Unknown]
  - Sinusitis [Not Recovered/Not Resolved]

NARRATIVE: CASE EVENT DATE: 20160209
